FAERS Safety Report 19201810 (Version 1)
Quarter: 2021Q2

REPORT INFORMATION
  Report Type: Report from Study
  Country: BR (occurrence: BR)
  Receive Date: 20210430
  Receipt Date: 20210430
  Transmission Date: 20210717
  Serious: Yes (Hospitalization, Disabling, Other)
  Sender: FDA-Public Use
  Company Number: BR-TAKEDA-2021TUS025830

PATIENT
  Sex: Male

DRUGS (6)
  1. HALOPERIDOL. [Concomitant]
     Active Substance: HALOPERIDOL
     Indication: SEDATION
     Route: 065
  2. FEIBA NF [Suspect]
     Active Substance: ANTI-INHIBITOR COAGULANT COMPLEX
     Indication: FACTOR VIII DEFICIENCY
     Route: 065
  3. HEMO?8R [Suspect]
     Active Substance: ANTIHEMOPHILIC FACTOR, HUMAN RECOMBINANT
     Indication: FACTOR VIII DEFICIENCY
     Dosage: 2000 INTERNATIONAL UNIT, Q3WEEKS
     Route: 042
     Dates: start: 2004
  4. FEIBA NF [Suspect]
     Active Substance: ANTI-INHIBITOR COAGULANT COMPLEX
     Dosage: UNK
     Route: 065
  5. PHENERGAN [Concomitant]
     Active Substance: PROMETHAZINE HYDROCHLORIDE
     Indication: INFERTILITY FEMALE
     Route: 065
  6. SPIRIDON [Concomitant]
     Indication: SEDATION
     Route: 065

REACTIONS (11)
  - Influenza [Unknown]
  - Cerebral thrombosis [Recovered/Resolved]
  - Haemophilia [Unknown]
  - Epilepsy [Unknown]
  - Drug ineffective [Unknown]
  - Fall [Recovered/Resolved]
  - Anxiety [Unknown]
  - Pneumonia [Unknown]
  - Psychomotor hyperactivity [Unknown]
  - Speech disorder [Not Recovered/Not Resolved]
  - Head injury [Recovered/Resolved]
